FAERS Safety Report 9470136 (Version 3)
Quarter: 2013Q3

REPORT INFORMATION
  Report Type: Report from Study
  Country: US (occurrence: US)
  Receive Date: 20130822
  Receipt Date: 20130919
  Transmission Date: 20140515
  Serious: Yes (Hospitalization, Other)
  Sender: FDA-Public Use
  Company Number: US-PURDUE-USA-2013-0105624

PATIENT
  Age: 54 Year
  Sex: Female

DRUGS (1)
  1. OXYCONTIN (NDA 22-272) [Suspect]
     Indication: PRODUCT USED FOR UNKNOWN INDICATION
     Dosage: 80 MG, TID
     Route: 048

REACTIONS (4)
  - Respiratory disorder [Unknown]
  - Cerebrovascular accident [Unknown]
  - Transient ischaemic attack [Unknown]
  - Carotid artery occlusion [Unknown]
